FAERS Safety Report 25739946 (Version 2)
Quarter: 2025Q4

REPORT INFORMATION
  Report Type: Spontaneous
  Country: US (occurrence: US)
  Receive Date: 20250829
  Receipt Date: 20251015
  Transmission Date: 20260119
  Serious: No
  Sender: LUPIN
  Company Number: US-LUPIN PHARMACEUTICALS INC.-2025-07510

PATIENT

DRUGS (1)
  1. ALBUTEROL SULFATE [Suspect]
     Active Substance: ALBUTEROL SULFATE
     Indication: Asthma
     Dosage: UNK, 2 PUFFS EVERY 2 TO 6 HOURS

REACTIONS (3)
  - Insomnia [Unknown]
  - Drug dose omission by device [Unknown]
  - Wrong technique in product usage process [Unknown]
